FAERS Safety Report 17973473 (Version 1)
Quarter: 2020Q3

REPORT INFORMATION
  Report Type: Other
  Country: CA (occurrence: CA)
  Receive Date: 20200702
  Receipt Date: 20200702
  Transmission Date: 20201103
  Serious: Yes (Other)
  Sender: FDA-Public Use
  Company Number: CA-ACCORD-187136

PATIENT
  Age: 7 Month

DRUGS (4)
  1. CARBOPLATIN. [Suspect]
     Active Substance: CARBOPLATIN
     Indication: RETINOBLASTOMA
     Route: 042
  2. ETOPOSIDE. [Suspect]
     Active Substance: ETOPOSIDE
     Indication: RETINOBLASTOMA
  3. CICLOSPORIN [Suspect]
     Active Substance: CYCLOSPORINE
     Indication: DRUG RESISTANCE
  4. VINCRISTINE [Suspect]
     Active Substance: VINCRISTINE
     Indication: RETINOBLASTOMA

REACTIONS (3)
  - Off label use [Unknown]
  - Deafness [Unknown]
  - Ototoxicity [Unknown]
